FAERS Safety Report 16879179 (Version 2)
Quarter: 2019Q4

REPORT INFORMATION
  Report Type: Spontaneous
  Country: DE (occurrence: DE)
  Receive Date: 20191003
  Receipt Date: 20191108
  Transmission Date: 20200122
  Serious: Yes (Hospitalization, Other)
  Sender: FDA-Public Use
  Company Number: DE-US-PROVELL PHARMACEUTICALS LLC-E2B_90071075

PATIENT
  Age: 16 Year
  Sex: Female

DRUGS (4)
  1. EUTHYROX [Suspect]
     Active Substance: LEVOTHYROXINE SODIUM
     Indication: THYROID DISORDER
     Dates: start: 2016
  2. EUTHYROX [Suspect]
     Active Substance: LEVOTHYROXINE SODIUM
     Dates: start: 201812
  3. EUTHYROX [Suspect]
     Active Substance: LEVOTHYROXINE SODIUM
     Dates: start: 2019, end: 20190925
  4. NOVAMINSULFON [Concomitant]
     Active Substance: METAMIZOLE
     Indication: HYPOTONIA
     Dosage: 500 (UNSPECIFIED UNIT)

REACTIONS (10)
  - Fatigue [Recovered/Resolved]
  - Intracranial pressure increased [Unknown]
  - Hypothalamo-pituitary disorder [Recovered/Resolved]
  - Intentional product misuse [Unknown]
  - Hepatic enzyme increased [Recovered/Resolved]
  - Orbital myositis [Recovered/Resolved]
  - Hyperthyroidism [Unknown]
  - Ear disorder [Recovered/Resolved]
  - Cyst [Recovered/Resolved]
  - Nausea [Recovered/Resolved]

NARRATIVE: CASE EVENT DATE: 2016
